FAERS Safety Report 6848597-6 (Version None)
Quarter: 2010Q3

REPORT INFORMATION
  Report Type: 
  Country: None (occurrence: None)
  Receive Date: 20100716
  Receipt Date: 20100714
  Transmission Date: 20110219
  Serious: Yes (Other)
  Sender: FDA-Public Use
  Company Number: US-BRISTOL-MYERS SQUIBB COMPANY-15192073

PATIENT

DRUGS (2)
  1. ENTECAVIR [Suspect]
  2. TENOFOVIR [Suspect]

REACTIONS (1)
  - FANCONI SYNDROME [None]
